FAERS Safety Report 4601750-4 (Version None)
Quarter: 2005Q1

REPORT INFORMATION
  Report Type: 
  Country: None (occurrence: None)
  Receive Date: 20050131
  Receipt Date: 20041215
  Transmission Date: 20050727
  Serious: No
  Sender: FDA-Public Use
  Company Number: 200419616US

PATIENT
  Age: 44 Year
  Sex: Female

DRUGS (3)
  1. KETEK [Suspect]
  2. CLAVULANATE POTASSIUM [Concomitant]
  3. AMOXICILLIN TRIHYDRATE (AUGMENTIN) [Concomitant]

REACTIONS (3)
  - ABDOMINAL DISCOMFORT [None]
  - DIARRHOEA [None]
  - NAUSEA [None]
